FAERS Safety Report 11111135 (Version 3)
Quarter: 2015Q3

REPORT INFORMATION
  Report Type: Spontaneous
  Country: US (occurrence: US)
  Receive Date: 20150513
  Receipt Date: 20150908
  Transmission Date: 20151125
  Serious: Yes (Hospitalization)
  Sender: FDA-Public Use
  Company Number: US-INCYTE CORPORATION-2015IN001988

PATIENT
  Age: 49 Year
  Sex: Female

DRUGS (13)
  1. EXJADE [Concomitant]
     Active Substance: DEFERASIROX
  2. COUMADIN [Concomitant]
     Active Substance: WARFARIN SODIUM
  3. CARAFATE [Concomitant]
     Active Substance: SUCRALFATE
  4. JAKAFI [Suspect]
     Active Substance: RUXOLITINIB
     Dosage: 25 MG, BID
     Route: 048
     Dates: start: 2015
  5. POTASSIUM [Concomitant]
     Active Substance: POTASSIUM
  6. SYMBICORT [Concomitant]
     Active Substance: BUDESONIDE\FORMOTEROL FUMARATE DIHYDRATE
  7. JAKAFI [Suspect]
     Active Substance: RUXOLITINIB
     Dosage: 10 MG, 1 TABLET IN THE AM AND 2 TABLETS IN THE PM
     Route: 048
     Dates: start: 20150129, end: 2015
  8. AMITIZA [Concomitant]
     Active Substance: LUBIPROSTONE
  9. PROTONIX [Concomitant]
     Active Substance: PANTOPRAZOLE SODIUM
  10. BOSULIF [Concomitant]
     Active Substance: BOSUTINIB MONOHYDRATE
  11. JAKAFI [Suspect]
     Active Substance: RUXOLITINIB
     Dosage: 10 MG, BID
     Route: 048
     Dates: start: 201502, end: 2015
  12. JAKAFI [Suspect]
     Active Substance: RUXOLITINIB
     Dosage: NOT SPECIFIED
     Dates: start: 201504, end: 2015
  13. ATIVAN [Concomitant]
     Active Substance: LORAZEPAM

REACTIONS (9)
  - Swelling [Unknown]
  - Weight increased [Unknown]
  - Headache [Unknown]
  - Platelet count increased [Unknown]
  - Blood calcium decreased [Unknown]
  - Fluid retention [Unknown]
  - Haemoglobin decreased [Unknown]
  - Platelet count decreased [Unknown]
  - Joint injury [Unknown]

NARRATIVE: CASE EVENT DATE: 201504
